FAERS Safety Report 8165654-5 (Version None)
Quarter: 2012Q1

REPORT INFORMATION
  Report Type: 
  Country: None (occurrence: None)
  Receive Date: 20120227
  Receipt Date: 20120215
  Transmission Date: 20120608
  Serious: Yes (Hospitalization)
  Sender: FDA-Public Use
  Company Number: TH-BRISTOL-MYERS SQUIBB COMPANY-16390171

PATIENT
  Age: 35 Year
  Sex: Female
  Weight: 34 kg

DRUGS (3)
  1. ATAZANAVIR [Suspect]
     Dosage: LAST DOSE ON 15JAN2012
     Route: 048
     Dates: start: 20101201
  2. COMBIVIR [Suspect]
     Dosage: LAST DOSE 0N 15JAN2012
     Route: 048
  3. RITONAVIR [Suspect]
     Dosage: LAST DOSE ON 15JAN2012
     Route: 048
     Dates: start: 20101201

REACTIONS (2)
  - ABORTION SPONTANEOUS [None]
  - PREGNANCY [None]
